FAERS Safety Report 19126669 (Version 3)
Quarter: 2021Q2

REPORT INFORMATION
  Report Type: Spontaneous
  Country: TR (occurrence: TR)
  Receive Date: 20210412
  Receipt Date: 20210622
  Transmission Date: 20210717
  Serious: Yes (Death)
  Sender: FDA-Public Use
  Company Number: TR-PFIZER INC-2021384324

PATIENT
  Age: 71 Year

DRUGS (1)
  1. GEMTUZUMAB OZOGAMICIN [Suspect]
     Active Substance: GEMTUZUMAB OZOGAMICIN
     Dosage: UNK

REACTIONS (3)
  - Febrile neutropenia [Fatal]
  - Septic shock [Fatal]
  - Klebsiella sepsis [Fatal]
